FAERS Safety Report 20730595 (Version 1)
Quarter: 2022Q2

REPORT INFORMATION
  Report Type: Report from Study
  Country: US (occurrence: US)
  Receive Date: 20220420
  Receipt Date: 20220420
  Transmission Date: 20220721
  Serious: Yes (Other)
  Sender: FDA-Public Use
  Company Number: US-ABBVIE-22K-163-4363864-00

PATIENT
  Sex: Male
  Weight: 111 kg

DRUGS (6)
  1. LUPRON [Suspect]
     Active Substance: LEUPROLIDE ACETATE
     Indication: Prostate cancer
     Route: 030
  2. XTANDI [Suspect]
     Active Substance: ENZALUTAMIDE
     Indication: Prostate cancer
     Route: 048
     Dates: start: 20191012
  3. RELUGOLIX [Concomitant]
     Active Substance: RELUGOLIX
     Indication: Product used for unknown indication
  4. AMLODIPINE [Concomitant]
     Active Substance: AMLODIPINE BESYLATE
     Indication: Product used for unknown indication
  5. HYDRALAZINE HYDROCHLORIDE [Concomitant]
     Active Substance: HYDRALAZINE HYDROCHLORIDE
     Indication: Product used for unknown indication
  6. ASPIRIN [Concomitant]
     Active Substance: ASPIRIN
     Indication: Product used for unknown indication

REACTIONS (9)
  - Squamous cell carcinoma [Recovered/Resolved]
  - Weight increased [Recovered/Resolved]
  - Thrombosed varicose vein [Recovered/Resolved]
  - Positron emission tomogram abnormal [Not Recovered/Not Resolved]
  - Apathy [Not Recovered/Not Resolved]
  - Muscular weakness [Not Recovered/Not Resolved]
  - Fatigue [Not Recovered/Not Resolved]
  - Hot flush [Not Recovered/Not Resolved]
  - Rash [Recovered/Resolved]

NARRATIVE: CASE EVENT DATE: 20210101
